FAERS Safety Report 11021867 (Version 1)
Quarter: 2015Q2

REPORT INFORMATION
  Report Type: Report from Study
  Country: US (occurrence: US)
  Receive Date: 20150413
  Receipt Date: 20150413
  Transmission Date: 20150821
  Serious: Yes (Hospitalization)
  Sender: FDA-Public Use
  Company Number: PHEH2014US024779

PATIENT
  Sex: Female

DRUGS (2)
  1. ILARIS [Suspect]
     Active Substance: CANAKINUMAB
     Indication: PRODUCT USED FOR UNKNOWN INDICATION
     Dosage: 80 MG, EVERY 8 WEEKS
     Route: 058
     Dates: start: 20141209
  2. ILARIS [Suspect]
     Active Substance: CANAKINUMAB
     Dosage: 90 MG, EVERY 8 WEEKS
     Route: 058

REACTIONS (4)
  - Pyrexia [Unknown]
  - Malaise [Unknown]
  - Incorrect dose administered [Unknown]
  - Rash [Unknown]
